FAERS Safety Report 23178034 (Version 1)
Quarter: 2023Q4

REPORT INFORMATION
  Report Type: Spontaneous
  Country: US (occurrence: US)
  Receive Date: 20231113
  Receipt Date: 20231113
  Transmission Date: 20240110
  Serious: Yes (Disabling)
  Sender: FDA-Public Use
  Company Number: US-BAYER-2023A158235

PATIENT
  Age: 77 Year
  Sex: Female
  Weight: 43.084 kg

DRUGS (1)
  1. CIPROFLOXACIN [Suspect]
     Active Substance: CIPROFLOXACIN
     Dosage: 500 MG, BID
     Route: 048
     Dates: start: 20231019, end: 2023

REACTIONS (3)
  - Nerve injury [None]
  - Pain [None]
  - Movement disorder [None]

NARRATIVE: CASE EVENT DATE: 20231023
